FAERS Safety Report 6580528-9 (Version None)
Quarter: 2010Q1

REPORT INFORMATION
  Report Type: 
  Country: None (occurrence: None)
  Receive Date: 20100212
  Receipt Date: 20100203
  Transmission Date: 20100710
  Serious: Yes (Hospitalization, Other)
  Sender: FDA-Public Use
  Company Number: CA-ABBOTT-10P-028-0624524-00

PATIENT
  Sex: Female
  Weight: 49.94 kg

DRUGS (8)
  1. HUMIRA [Suspect]
     Indication: RHEUMATOID ARTHRITIS
     Dates: start: 20071207
  2. HUMIRA [Suspect]
     Route: 058
     Dates: start: 20100201
  3. METHOTREXATE [Concomitant]
     Indication: ARTHRALGIA
     Route: 048
  4. FOLIC ACID [Concomitant]
     Indication: DRUG USE FOR UNKNOWN INDICATION
     Dosage: (DAILY EXCEPT ON DAY OF METHOTREXATE)
  5. PARIET [Concomitant]
     Indication: NAUSEA
     Route: 048
  6. TYLENOL (CAPLET) [Concomitant]
     Indication: ARTHRALGIA
  7. PREDNISONE [Concomitant]
     Indication: ARTHRALGIA
  8. DIOVAN [Concomitant]
     Indication: HYPERTENSION
     Route: 048
     Dates: start: 20080101

REACTIONS (9)
  - ARTHRALGIA [None]
  - DRUG INEFFECTIVE [None]
  - GAIT DISTURBANCE [None]
  - HIP ARTHROPLASTY [None]
  - HYPERTENSION [None]
  - MUSCULAR WEAKNESS [None]
  - OESOPHAGEAL STENOSIS [None]
  - SHOULDER ARTHROPLASTY [None]
  - VOMITING [None]
